FAERS Safety Report 18181041 (Version 1)
Quarter: 2020Q3

REPORT INFORMATION
  Report Type: Spontaneous
  Country: US (occurrence: US)
  Receive Date: 20200821
  Receipt Date: 20200821
  Transmission Date: 20201103
  Serious: Yes (Other)
  Sender: FDA-Public Use
  Company Number: US-PFIZER INC-2020324866

PATIENT
  Age: 78 Year
  Sex: Female
  Weight: 77.11 kg

DRUGS (1)
  1. PHENYTOIN SODIUM. [Suspect]
     Active Substance: PHENYTOIN SODIUM
     Indication: SEIZURE
     Dosage: UNK
     Route: 042

REACTIONS (2)
  - Seizure [Unknown]
  - Anticonvulsant drug level decreased [Unknown]
